FAERS Safety Report 4707052-X (Version None)
Quarter: 2005Q3

REPORT INFORMATION
  Report Type: 
  Country: None (occurrence: None)
  Receive Date: 20050701
  Receipt Date: 20050620
  Transmission Date: 20060218
  Serious: Yes (Hospitalization)
  Sender: FDA-Public Use
  Company Number: 200505218

PATIENT
  Age: 50 Year
  Sex: Female

DRUGS (2)
  1. BOTOX COSMETIC [Suspect]
     Indication: SKIN WRINKLING
     Dosage: 10 UNITS PRN IM
     Route: 030
     Dates: start: 20041220, end: 20041220
  2. BOTOX COSMETIC [Suspect]
     Indication: SKIN WRINKLING
     Dosage: 40 UNITS PRN IM
     Route: 030
     Dates: start: 20050615, end: 20050615

REACTIONS (16)
  - ABDOMINAL SYMPTOM [None]
  - ASPIRATION [None]
  - BACK PAIN [None]
  - COUGH [None]
  - DYSPHAGIA [None]
  - DYSPHONIA [None]
  - FATIGUE [None]
  - HEADACHE [None]
  - INFLUENZA LIKE ILLNESS [None]
  - NASOPHARYNGEAL DISORDER [None]
  - NAUSEA [None]
  - NECK PAIN [None]
  - PHARYNGOLARYNGEAL PAIN [None]
  - PYREXIA [None]
  - RESPIRATORY TRACT INFECTION [None]
  - VOMITING [None]
